FAERS Safety Report 13212907 (Version 1)
Quarter: 2017Q1

REPORT INFORMATION
  Report Type: Spontaneous
  Country: US (occurrence: US)
  Receive Date: 20170209
  Receipt Date: 20170209
  Transmission Date: 20170428
  Serious: No
  Sender: FDA-Public Use
  Company Number: US-ALLERGAN-1672421US

PATIENT
  Sex: Female

DRUGS (1)
  1. BOTOX [Suspect]
     Active Substance: ONABOTULINUMTOXINA
     Indication: MIGRAINE
     Dosage: UNK UNK, SINGLE
     Route: 030

REACTIONS (7)
  - Cough [Not Recovered/Not Resolved]
  - Throat irritation [Not Recovered/Not Resolved]
  - Pain [Not Recovered/Not Resolved]
  - Oropharyngeal plaque [Not Recovered/Not Resolved]
  - Tongue discomfort [Not Recovered/Not Resolved]
  - Sensation of foreign body [Not Recovered/Not Resolved]
  - Wheezing [Not Recovered/Not Resolved]

NARRATIVE: CASE EVENT DATE: 201608
